FAERS Safety Report 4559003-9 (Version None)
Quarter: 2005Q1

REPORT INFORMATION
  Report Type: 
  Country: None (occurrence: None)
  Receive Date: 20050124
  Receipt Date: 20050111
  Transmission Date: 20050727
  Serious: Yes (Other)
  Sender: FDA-Public Use
  Company Number: PHEH2005US00770

PATIENT
  Age: 66 Year
  Sex: Female

DRUGS (6)
  1. NEXIUM [Concomitant]
  2. ZOCOR [Concomitant]
  3. ZETIA [Concomitant]
  4. PAXIL [Concomitant]
  5. ASPIRIN [Concomitant]
  6. ZELNORM [Suspect]
     Indication: IRRITABLE BOWEL SYNDROME
     Dosage: 2MG TABLET QHS
     Route: 048
     Dates: start: 20040701

REACTIONS (2)
  - ALOPECIA [None]
  - WEIGHT DECREASED [None]
